FAERS Safety Report 7785990-1 (Version None)
Quarter: 2011Q3

REPORT INFORMATION
  Report Type: 
  Country: None (occurrence: None)
  Receive Date: 20110929
  Receipt Date: 20110708
  Transmission Date: 20111222
  Serious: No
  Sender: FDA-Public Use
  Company Number: US-BAYER-2011-060364

PATIENT
  Age: 54 Year
  Sex: Female
  Weight: 79 kg

DRUGS (3)
  1. ALEVE (CAPLET) [Suspect]
     Dosage: 1 DF, PRN NON WORKING DAYS
     Route: 048
  2. VITAMIN TAB [Concomitant]
  3. ALEVE (CAPLET) [Suspect]
     Indication: BACK PAIN
     Dosage: 2 DF, BID DURING WORK DAYS
     Route: 048

REACTIONS (1)
  - ABDOMINAL DISCOMFORT [None]
